FAERS Safety Report 9929943 (Version 2)
Quarter: 2014Q1

REPORT INFORMATION
  Report Type: Spontaneous
  Country: CA (occurrence: CA)
  Receive Date: 20140227
  Receipt Date: 20140310
  Transmission Date: 20141002
  Serious: Yes (Other)
  Sender: FDA-Public Use
  Company Number: CHPA2014CA002948

PATIENT
  Age: 47 Year
  Sex: Female

DRUGS (7)
  1. MAALOX REGULAR STRENGTH CHEWABLE [Suspect]
     Indication: FLATULENCE
     Dosage: 2 DF, PRN
     Route: 048
  2. MAALOX REGULAR STRENGTH CHEWABLE [Suspect]
     Indication: ABDOMINAL DISTENSION
  3. MAALOX REGULAR STRENGTH CHEWABLE [Suspect]
     Indication: ERUCTATION
  4. MAALOX REGULAR STRENGTH CHEWABLE [Suspect]
     Indication: ABDOMINAL PAIN UPPER
  5. MAALOX REGULAR STRENGTH CHEWABLE [Suspect]
     Indication: OFF LABEL USE
  6. ADALAT XL [Concomitant]
     Indication: HYPERTENSION
     Dosage: 30 MG, QD
  7. CALTRATE [Concomitant]

REACTIONS (1)
  - Thyroid cancer [Recovered/Resolved]
